FAERS Safety Report 6667923-4 (Version None)
Quarter: 2010Q2

REPORT INFORMATION
  Report Type: 
  Country: None (occurrence: None)
  Receive Date: 20100405
  Receipt Date: 20100326
  Transmission Date: 20101027
  Serious: Yes (Hospitalization)
  Sender: FDA-Public Use
  Company Number: FR-JNJCH-2010007558

PATIENT
  Sex: Female

DRUGS (2)
  1. ACTIFED [Suspect]
     Indication: NASOPHARYNGITIS
     Dosage: TEXT:UNKNOWN
     Route: 048
     Dates: start: 20100120, end: 20100120
  2. ACTIFED [Suspect]
     Indication: NASOPHARYNGITIS
     Dosage: TEXT:UNKNOWN
     Route: 048
     Dates: start: 20100119, end: 20100120

REACTIONS (3)
  - BALANCE DISORDER [None]
  - DIPLOPIA [None]
  - VISUAL IMPAIRMENT [None]
